FAERS Safety Report 14478039 (Version 5)
Quarter: 2018Q2

REPORT INFORMATION
  Report Type: Report from Study
  Country: ES (occurrence: ES)
  Receive Date: 20180201
  Receipt Date: 20180417
  Transmission Date: 20180711
  Serious: Yes (Hospitalization, Other)
  Sender: FDA-Public Use
  Company Number: ES-AMGEN-ESPSL2018012159

PATIENT
  Age: 92 Year
  Sex: Male

DRUGS (3)
  1. NPLATE [Suspect]
     Active Substance: ROMIPLOSTIM
     Dosage: 250 MCG, QMO
     Route: 065
     Dates: start: 20180207
  2. MORPHINE [Concomitant]
     Active Substance: MORPHINE
  3. NPLATE [Suspect]
     Active Substance: ROMIPLOSTIM
     Indication: THROMBOCYTOPENIC PURPURA
     Dosage: 250 MCG, QMO
     Route: 065

REACTIONS (10)
  - Faecaloma [Recovered/Resolved]
  - Nasopharyngitis [Recovering/Resolving]
  - Lung infection [Recovering/Resolving]
  - Renal disorder [Unknown]
  - Muscular weakness [Unknown]
  - Off label use [Unknown]
  - Respiratory tract infection [Unknown]
  - Oliguria [Unknown]
  - Respiratory failure [Unknown]
  - Mobility decreased [Unknown]

NARRATIVE: CASE EVENT DATE: 20180208
